FAERS Safety Report 5638344-8 (Version None)
Quarter: 2008Q1

REPORT INFORMATION
  Report Type: 
  Country: None (occurrence: None)
  Receive Date: 20080222
  Receipt Date: 20080208
  Transmission Date: 20080703
  Serious: Yes (Other)
  Sender: FDA-Public Use
  Company Number: 2008-01268

PATIENT
  Age: 43 Year
  Sex: Female

DRUGS (1)
  1. TRELSTAR DEPOT [Suspect]
     Indication: ADENOMYOSIS
     Dosage: 3.75 MG,Q 28 DAYS X 4 INJECTIONS, INTRAMUSCULAR
     Route: 030
     Dates: start: 20070701, end: 20071001

REACTIONS (1)
  - VISUAL ACUITY REDUCED [None]
